FAERS Safety Report 5260840-6 (Version None)
Quarter: 2007Q1

REPORT INFORMATION
  Report Type: 
  Country: None (occurrence: None)
  Receive Date: 20070306
  Receipt Date: 20070221
  Transmission Date: 20070707
  Serious: Yes (Life-Threatening, Hospitalization)
  Sender: FDA-Public Use
  Company Number: T200700093

PATIENT
  Age: 65 Year
  Sex: Male
  Weight: 66 kg

DRUGS (4)
  1. OPTIRAY 320 [Suspect]
     Indication: COMPUTERISED TOMOGRAM ABDOMEN
     Dosage: 100 ML, SINGLE, INTRAVENOUS
     Route: 042
     Dates: start: 20070117, end: 20070117
  2. CARVEDILOL [Concomitant]
  3. NIFEDIPINE [Concomitant]
  4. ACE INHIBITOR [Concomitant]

REACTIONS (1)
  - ANAPHYLACTIC SHOCK [None]
